FAERS Safety Report 21325587 (Version 1)
Quarter: 2022Q3

REPORT INFORMATION
  Report Type: Spontaneous
  Country: US (occurrence: None)
  Receive Date: 20220912
  Receipt Date: 20220912
  Transmission Date: 20221027
  Serious: Yes (Death)
  Sender: FDA-Public Use
  Company Number: None

PATIENT
  Age: 78 Year
  Sex: Male
  Weight: 86.18 kg

DRUGS (6)
  1. CAPECITABINE [Suspect]
     Active Substance: CAPECITABINE
     Indication: Colon cancer
     Dosage: OTHER FREQUENCY : Q 12HRS;?
     Route: 048
     Dates: start: 20220408, end: 20220423
  2. ASPIRIN [Concomitant]
     Active Substance: ASPIRIN
  3. ATORVASTATIN [Concomitant]
     Active Substance: ATORVASTATIN
  4. DOXAZOSIN [Concomitant]
     Active Substance: DOXAZOSIN MESYLATE
  5. HYDROCHLOROTHIAZIDE\TRIAMTERENE [Concomitant]
     Active Substance: HYDROCHLOROTHIAZIDE\TRIAMTERENE
  6. METOPROLOL [Concomitant]
     Active Substance: METOPROLOL

REACTIONS (1)
  - Death [None]

NARRATIVE: CASE EVENT DATE: 20220823
